FAERS Safety Report 15367715 (Version 4)
Quarter: 2018Q4

REPORT INFORMATION
  Report Type: Spontaneous
  Country: DE (occurrence: DE)
  Receive Date: 20180910
  Receipt Date: 20181222
  Transmission Date: 20190204
  Serious: Yes (Other)
  Sender: FDA-Public Use
  Company Number: PHHY2018DE091455

PATIENT
  Sex: Male

DRUGS (8)
  1. AZATHIOPRINE. [Suspect]
     Active Substance: AZATHIOPRINE
     Indication: AUTOIMMUNE PANCREATITIS
  2. AZATHIOPRINE. [Suspect]
     Active Substance: AZATHIOPRINE
     Indication: CHOLANGITIS
     Dosage: 150 MG, QD
     Route: 065
  3. PREDNISOLONE. [Suspect]
     Active Substance: PREDNISOLONE
     Indication: CHOLANGITIS
     Dosage: 10 MG, QD
     Route: 065
  4. RITUXIMAB. [Concomitant]
     Active Substance: RITUXIMAB
     Indication: AUTOIMMUNE PANCREATITIS
  5. MYCOPHENOLATE MOFETIL. [Suspect]
     Active Substance: MYCOPHENOLATE MOFETIL
     Indication: CHOLANGITIS
  6. RITUXIMAB. [Concomitant]
     Active Substance: RITUXIMAB
     Indication: CHOLANGITIS
     Dosage: 375 MG PER M^2 BODY SURFACE AREA WEEKLY FOR 4 WEEKS, THEN EVERY 2 MONTHS FOR 24 MONTHS.
     Route: 065
  7. MYCOPHENOLATE MOFETIL. [Suspect]
     Active Substance: MYCOPHENOLATE MOFETIL
     Indication: AUTOIMMUNE PANCREATITIS
     Dosage: 1000 MG, BID
     Route: 065
  8. PREDNISOLONE. [Suspect]
     Active Substance: PREDNISOLONE
     Indication: AUTOIMMUNE PANCREATITIS
     Dosage: INCREASED TO 40 MG DAILY
     Route: 065

REACTIONS (5)
  - Drug ineffective [Unknown]
  - Cholangitis [Recovering/Resolving]
  - Disease recurrence [Recovering/Resolving]
  - Pancreatitis relapsing [Recovering/Resolving]
  - Bile duct stenosis [Recovering/Resolving]
